FAERS Safety Report 12386419 (Version 4)
Quarter: 2019Q1

REPORT INFORMATION
  Report Type: Spontaneous
  Country: IE (occurrence: IE)
  Receive Date: 20160519
  Receipt Date: 20190118
  Transmission Date: 20190417
  Serious: Yes (Hospitalization, Other)
  Sender: FDA-Public Use
  Company Number: IE-SA-2016SA093002

PATIENT
  Age: 34 Year
  Sex: Female
  Weight: 71.6 kg

DRUGS (22)
  1. SYNTOMETRINE [ERGOMETRINE;OXYTOCIN] [Concomitant]
     Indication: PROPHYLAXIS
     Dosage: UNK
     Route: 042
     Dates: start: 20161018, end: 20161018
  2. STEMETIL [PROCHLORPERAZINE] [Concomitant]
     Indication: NAUSEA
     Dosage: 12.5 MG
     Route: 030
     Dates: start: 20161018, end: 20161018
  3. SODIUM CITRATE. [Concomitant]
     Active Substance: SODIUM CITRATE
     Indication: PROPHYLAXIS
     Dosage: UNK
     Route: 065
     Dates: start: 20161018, end: 20161018
  4. FOLIC ACID. [Concomitant]
     Active Substance: FOLIC ACID
     Indication: PROPHYLAXIS
     Dosage: UNK
     Route: 065
     Dates: start: 201601
  5. INSULIN LISPRO [Suspect]
     Active Substance: INSULIN LISPRO
     Dosage: 36 IU,QD
     Route: 058
  6. LEVEMIR [Suspect]
     Active Substance: INSULIN DETEMIR
     Indication: TYPE 1 DIABETES MELLITUS
     Dosage: 18 IU,QD
     Route: 058
     Dates: start: 20160414
  7. ACTRAPID [Concomitant]
     Active Substance: INSULIN HUMAN
     Indication: TYPE 1 DIABETES MELLITUS
     Dosage: 16 U, QD
     Route: 065
     Dates: start: 20161018, end: 20161018
  8. DIFENE [Concomitant]
     Active Substance: DICLOFENAC SODIUM
     Indication: ANALGESIC THERAPY
     Dosage: 100 MG
     Route: 065
     Dates: start: 20161018, end: 20161018
  9. INSULIN LISPRO [Suspect]
     Active Substance: INSULIN LISPRO
     Dosage: 47 IU,QD
     Route: 058
  10. LEVEMIR [Suspect]
     Active Substance: INSULIN DETEMIR
     Dosage: 13 IU,QD
     Route: 058
  11. BENZYLPENICILLIN [Concomitant]
     Active Substance: PENICILLIN G
     Indication: PROPHYLAXIS
     Dosage: 3G + 1.5G
     Route: 042
     Dates: start: 20161018, end: 20161018
  12. BUPIVACAINE. [Concomitant]
     Active Substance: BUPIVACAINE
     Indication: ANALGESIC THERAPY
     Dosage: UNK
     Route: 065
     Dates: start: 20161018, end: 20161018
  13. LIGNOCAINE [LIDOCAINE] [Concomitant]
     Indication: PROPHYLAXIS
     Dosage: 4 ML
     Route: 065
     Dates: start: 20161018, end: 20161018
  14. PARACETAMOL [Concomitant]
     Active Substance: ACETAMINOPHEN
     Indication: ANALGESIC THERAPY
     Dosage: 1 G
     Route: 048
     Dates: start: 20161018, end: 20161018
  15. LOSEC [OMEPRAZOLE] [Concomitant]
     Indication: NAUSEA
     Dosage: 40 MG
     Route: 048
     Dates: start: 20161020, end: 20161020
  16. FENTANYL. [Concomitant]
     Active Substance: FENTANYL
     Indication: ANALGESIC THERAPY
     Dosage: 42 UG
     Route: 065
     Dates: start: 20161018, end: 20161018
  17. LEVEMIR [Suspect]
     Active Substance: INSULIN DETEMIR
     Dosage: 15 IU,QD
     Route: 058
     Dates: start: 20160513
  18. RANITIDINE. [Concomitant]
     Active Substance: RANITIDINE
     Indication: PROPHYLAXIS
     Dosage: 150 UG
     Route: 048
     Dates: start: 20161019, end: 20161019
  19. LANTUS [Suspect]
     Active Substance: INSULIN GLARGINE
     Indication: TYPE 1 DIABETES MELLITUS
     Dosage: 16 IU,QD
     Route: 058
     Dates: start: 2000, end: 20160413
  20. INSULIN LISPRO [Suspect]
     Active Substance: INSULIN LISPRO
     Indication: TYPE 1 DIABETES MELLITUS
     Dosage: 23 IU,QD
     Route: 058
     Dates: start: 2000
  21. IBUPROFEN. [Concomitant]
     Active Substance: IBUPROFEN
     Indication: ANALGESIC THERAPY
     Dosage: 400 MG
     Route: 065
     Dates: start: 20161019, end: 20161020
  22. RHOPHYLAC [Concomitant]
     Active Substance: HUMAN RHO(D) IMMUNE GLOBULIN
     Indication: PROPHYLAXIS
     Route: 065

REACTIONS (4)
  - Exposure during pregnancy [Unknown]
  - Hypoglycaemic seizure [Recovered/Resolved]
  - Hypoglycaemia [Recovered/Resolved]
  - Hypoglycaemic seizure [Recovered/Resolved]

NARRATIVE: CASE EVENT DATE: 20160125
